FAERS Safety Report 10573997 (Version 2)
Quarter: 2014Q4

REPORT INFORMATION
  Report Type: Report from Study
  Country: JP (occurrence: JP)
  Receive Date: 20141110
  Receipt Date: 20141110
  Transmission Date: 20150529
  Serious: Yes (Other)
  Sender: FDA-Public Use
  Company Number: JP-GLAXOSMITHKLINE-B0924948A

PATIENT
  Age: 17 Year
  Sex: Female
  Weight: 48 kg

DRUGS (8)
  1. PAZOPANIB [Suspect]
     Active Substance: PAZOPANIB
     Route: 048
     Dates: start: 20140310, end: 20140605
  2. UNKNOWNDRUG [Concomitant]
     Active Substance: UNSPECIFIED INGREDIENT
     Route: 065
  3. LAFUTIDINE [Concomitant]
     Active Substance: LAFUTIDINE
     Route: 048
  4. PAZOPANIB [Suspect]
     Active Substance: PAZOPANIB
     Indication: LEIOMYOSARCOMA
     Dosage: 400 MG, QD
     Route: 048
     Dates: start: 20130419, end: 20130826
  5. PAZOPANIB [Suspect]
     Active Substance: PAZOPANIB
     Route: 048
     Dates: start: 20131129, end: 20140309
  6. PAZOPANIB [Suspect]
     Active Substance: PAZOPANIB
     Route: 048
     Dates: start: 20131121, end: 20131128
  7. PAZOPANIB [Suspect]
     Active Substance: PAZOPANIB
     Dosage: 600 MG, QD
     Route: 048
     Dates: start: 20130827, end: 20131008
  8. GASTER [Concomitant]
     Active Substance: FAMOTIDINE
     Indication: GASTRITIS
     Dosage: UNK

REACTIONS (4)
  - Diarrhoea [Not Recovered/Not Resolved]
  - Hair colour changes [Unknown]
  - Pneumothorax [Recovered/Resolved]
  - Hair colour changes [Not Recovered/Not Resolved]

NARRATIVE: CASE EVENT DATE: 20130531
